FAERS Safety Report 5096013-X (Version None)
Quarter: 2006Q3

REPORT INFORMATION
  Report Type: 
  Country: None (occurrence: None)
  Receive Date: 20060905
  Receipt Date: 20060830
  Transmission Date: 20061208
  Serious: Yes (Hospitalization)
  Sender: FDA-Public Use
  Company Number: FR-GLAXOSMITHKLINE-B0436478A

PATIENT
  Age: 80 Year
  Sex: Female
  Weight: 91 kg

DRUGS (8)
  1. ZOPHREN [Suspect]
     Route: 042
     Dates: start: 20060608, end: 20060608
  2. CARBOPLATIN [Suspect]
     Route: 042
     Dates: start: 20060608, end: 20060608
  3. TENORMIN [Concomitant]
     Route: 065
  4. AMLODIPINE BESYLATE [Concomitant]
     Route: 065
  5. GLUCOPHAGE [Concomitant]
     Route: 065
  6. ASPEGIC 1000 [Concomitant]
     Route: 065
  7. PRAVASTATIN [Concomitant]
     Route: 065
  8. RADIOTHERAPY [Concomitant]

REACTIONS (10)
  - CHILLS [None]
  - ENTEROBACTER INFECTION [None]
  - HYPERSENSITIVITY [None]
  - NAUSEA [None]
  - OEDEMA PERIPHERAL [None]
  - PRURITUS [None]
  - PURPURA [None]
  - PYREXIA [None]
  - RASH ERYTHEMATOUS [None]
  - VOMITING [None]
